FAERS Safety Report 21109849 (Version 1)
Quarter: 2022Q3

REPORT INFORMATION
  Report Type: Spontaneous
  Country: US (occurrence: None)
  Receive Date: 20220720
  Receipt Date: 20220720
  Transmission Date: 20221026
  Serious: No
  Sender: FDA-Public Use
  Company Number: None

PATIENT
  Sex: Female

DRUGS (1)
  1. HUMIRA [Suspect]
     Active Substance: ADALIMUMAB
     Indication: Rheumatoid arthritis
     Dosage: 40MG EVERY 14 DAYS SC?
     Route: 058
     Dates: start: 20220510

REACTIONS (3)
  - Incorrect dose administered [None]
  - Injection site extravasation [None]
  - Device malfunction [None]
